FAERS Safety Report 4886903-2 (Version None)
Quarter: 2006Q1

REPORT INFORMATION
  Report Type: 
  Country: None (occurrence: None)
  Receive Date: 20060119
  Receipt Date: 20060110
  Transmission Date: 20060701
  Serious: Yes (Other)
  Sender: FDA-Public Use
  Company Number: GBWYE289710JAN06

PATIENT
  Sex: Male

DRUGS (5)
  1. EFFEXOR XR [Suspect]
     Dosage: 75M, ORAL
     Route: 048
  2. OLANZAPINE [Concomitant]
  3. LITHIUM CARBONATE [Concomitant]
  4. THYROXIN T3 (LEVOTHYROXINE SODIUM, LIOTHYRONINE) [Concomitant]
  5. FLUOXETINE [Concomitant]

REACTIONS (1)
  - FALL [None]
